FAERS Safety Report 7133486-2 (Version None)
Quarter: 2010Q4

REPORT INFORMATION
  Report Type: 
  Country: None (occurrence: None)
  Receive Date: 20101202
  Receipt Date: 20101129
  Transmission Date: 20110411
  Serious: Yes (Other)
  Sender: FDA-Public Use
  Company Number: JP-PFIZER INC-2010136954

PATIENT
  Age: 84 Year
  Sex: Male

DRUGS (1)
  1. ZOLOFT [Suspect]
     Dosage: 1 DF, UNK
     Route: 048

REACTIONS (2)
  - DELIRIUM [None]
  - HYPONATRAEMIA [None]
